FAERS Safety Report 7959821-0 (Version None)
Quarter: 2011Q4

REPORT INFORMATION
  Report Type: 
  Country: None (occurrence: None)
  Receive Date: 20111206
  Receipt Date: 20111128
  Transmission Date: 20120403
  Serious: Yes (Hospitalization)
  Sender: FDA-Public Use
  Company Number: US-US-EMD SERONO, INC.-7098598

PATIENT
  Sex: Female

DRUGS (1)
  1. REBIF [Suspect]
     Indication: MULTIPLE SCLEROSIS
     Route: 058
     Dates: start: 20110409

REACTIONS (4)
  - PHARYNGITIS STREPTOCOCCAL [None]
  - GAIT DISTURBANCE [None]
  - PNEUMONIA [None]
  - INJECTION SITE ERYTHEMA [None]
